FAERS Safety Report 16395852 (Version 1)
Quarter: 2019Q2

REPORT INFORMATION
  Report Type: Spontaneous
  Country: CA (occurrence: CA)
  Receive Date: 20190605
  Receipt Date: 20190605
  Transmission Date: 20190711
  Serious: Yes (Other)
  Sender: FDA-Public Use
  Company Number: CA-BAUSCH-BL-2019-015788

PATIENT
  Sex: Female
  Weight: 74.91 kg

DRUGS (12)
  1. SUBOXONE [Suspect]
     Active Substance: BUPRENORPHINE HYDROCHLORIDE\NALOXONE HYDROCHLORIDE
     Indication: DRUG DEPENDENCE
     Route: 065
     Dates: start: 20180606, end: 20180903
  2. GABAPENTIN. [Suspect]
     Active Substance: GABAPENTIN
     Indication: PRODUCT USED FOR UNKNOWN INDICATION
     Route: 065
     Dates: start: 2018, end: 201809
  3. CYMBALTA [Suspect]
     Active Substance: DULOXETINE HYDROCHLORIDE
     Indication: PRODUCT USED FOR UNKNOWN INDICATION
     Route: 065
     Dates: start: 2018
  4. SUBUTEX [Suspect]
     Active Substance: BUPRENORPHINE HYDROCHLORIDE
     Indication: DRUG DEPENDENCE
     Route: 065
     Dates: start: 20180904, end: 20190301
  5. LORAZEPAM. [Suspect]
     Active Substance: LORAZEPAM
     Indication: ANXIETY
     Route: 065
     Dates: start: 2018
  6. PERCOCET [Suspect]
     Active Substance: ACETAMINOPHEN\OXYCODONE HYDROCHLORIDE
     Indication: PRODUCT USED FOR UNKNOWN INDICATION
     Dosage: 200 TABLETS PER MONTH
     Route: 065
     Dates: start: 20180606, end: 201806
  7. DICLECTIN [Suspect]
     Active Substance: DOXYLAMINE SUCCINATE\PYRIDOXINE HYDROCHLORIDE
     Indication: MORNING SICKNESS
     Route: 065
     Dates: start: 2018
  8. CANNABIS [Suspect]
     Active Substance: CANNABIS SATIVA SUBSP. INDICA TOP
     Indication: PRODUCT USED FOR UNKNOWN INDICATION
     Route: 065
     Dates: start: 2018
  9. MAXERAN [Suspect]
     Active Substance: METOCLOPRAMIDE HYDROCHLORIDE
     Indication: MORNING SICKNESS
     Route: 065
     Dates: start: 2018
  10. GABAPENTIN. [Suspect]
     Active Substance: GABAPENTIN
     Route: 065
     Dates: start: 201809, end: 20190228
  11. ZOFRAN [Suspect]
     Active Substance: ONDANSETRON HYDROCHLORIDE
     Indication: MORNING SICKNESS
     Route: 065
     Dates: start: 2018
  12. GRAVOL [Suspect]
     Active Substance: DIMENHYDRINATE
     Indication: MORNING SICKNESS
     Route: 065
     Dates: start: 2018

REACTIONS (4)
  - Maternal exposure during pregnancy [Unknown]
  - Premature separation of placenta [Unknown]
  - Abdominal injury [Unknown]
  - Fall [Unknown]

NARRATIVE: CASE EVENT DATE: 20180606
